FAERS Safety Report 7116080-9 (Version None)
Quarter: 2010Q4

REPORT INFORMATION
  Report Type: 
  Country: None (occurrence: None)
  Receive Date: 20101122
  Receipt Date: 20101109
  Transmission Date: 20110411
  Serious: Yes (Other)
  Sender: FDA-Public Use
  Company Number: US-ROCHE-741715

PATIENT
  Age: 70 Year
  Sex: Female

DRUGS (1)
  1. AVASTIN [Suspect]
     Dosage: FORM: EYE INJECTION
     Route: 031
     Dates: start: 20101022

REACTIONS (1)
  - PSEUDOENDOPHTHALMITIS [None]
